FAERS Safety Report 18740114 (Version 1)
Quarter: 2021Q1

REPORT INFORMATION
  Report Type: Spontaneous
  Country: US (occurrence: US)
  Receive Date: 20210113
  Receipt Date: 20210113
  Transmission Date: 20210419
  Serious: Yes (Hospitalization)
  Sender: FDA-Public Use
  Company Number: None

PATIENT
  Age: 60 Year
  Sex: Male
  Weight: 74 kg

DRUGS (1)
  1. ROSUVASTATIN (ROSUVASTATIN CA 5MG TAB) [Suspect]
     Active Substance: ROSUVASTATIN
     Indication: HYPERLIPIDAEMIA
     Route: 048
     Dates: start: 20201029, end: 20201029

REACTIONS (2)
  - Acute kidney injury [None]
  - Rhabdomyolysis [None]

NARRATIVE: CASE EVENT DATE: 20201029
